FAERS Safety Report 15822633 (Version 1)
Quarter: 2019Q1

REPORT INFORMATION
  Report Type: Spontaneous
  Country: TR (occurrence: TR)
  Receive Date: 20190114
  Receipt Date: 20190114
  Transmission Date: 20190417
  Serious: Yes (Other)
  Sender: FDA-Public Use
  Company Number: PHHY2019TR002798

PATIENT
  Age: 10 Year
  Sex: Male

DRUGS (2)
  1. ETANERCEPT [Suspect]
     Active Substance: ETANERCEPT
     Indication: COMBINED IMMUNODEFICIENCY
     Route: 065
  2. ETANERCEPT [Suspect]
     Active Substance: ETANERCEPT
     Indication: POLYARTERITIS NODOSA

REACTIONS (11)
  - Gastrointestinal perforation [Unknown]
  - Aneurysm [Unknown]
  - Left ventricular hypertrophy [Unknown]
  - Subdural haemorrhage [Unknown]
  - Stenosis [Unknown]
  - Strabismus [Unknown]
  - IIIrd nerve paralysis [Unknown]
  - Livedo reticularis [Unknown]
  - Product use in unapproved indication [Unknown]
  - Uveitis [Unknown]
  - Lymphopenia [Unknown]
